FAERS Safety Report 7434710-9 (Version None)
Quarter: 2011Q2

REPORT INFORMATION
  Report Type: 
  Country: None (occurrence: None)
  Receive Date: 20110425
  Receipt Date: 20110411
  Transmission Date: 20111010
  Serious: Yes (Death, Other)
  Sender: FDA-Public Use
  Company Number: FR-CELGENEUS-056-21880-10111882

PATIENT
  Age: 70 Year
  Sex: Female
  Weight: 64 kg

DRUGS (5)
  1. VINCRISTINE [Concomitant]
     Indication: NON-HODGKIN'S LYMPHOMA
     Route: 051
     Dates: start: 20100817, end: 20100817
  2. REVLIMID [Suspect]
     Indication: NON-HODGKIN'S LYMPHOMA
     Dosage: 10 MILLIGRAM
     Route: 048
     Dates: start: 20100818, end: 20100907
  3. RITUXIMAB [Concomitant]
     Indication: NON-HODGKIN'S LYMPHOMA
     Route: 051
     Dates: start: 20100817, end: 20100817
  4. ENDOXAN [Concomitant]
     Indication: NON-HODGKIN'S LYMPHOMA
     Route: 051
     Dates: start: 20100817, end: 20100817
  5. DOXORUBICIN [Concomitant]
     Indication: NON-HODGKIN'S LYMPHOMA
     Route: 051
     Dates: start: 20100817, end: 20100817

REACTIONS (2)
  - DEATH [None]
  - PULMONARY EMBOLISM [None]
